FAERS Safety Report 24706231 (Version 1)
Quarter: 2024Q4

REPORT INFORMATION
  Report Type: Spontaneous
  Country: US (occurrence: US)
  Receive Date: 20241206
  Receipt Date: 20241206
  Transmission Date: 20250114
  Serious: No
  Sender: ADARE PHARMACEUTICALS
  Company Number: US-ADAREPHARM-2024-US-000067

PATIENT
  Age: 30 Year
  Sex: Male

DRUGS (1)
  1. DEXMETHYLPHENIDATE HYDROCHLORIDE [Suspect]
     Active Substance: DEXMETHYLPHENIDATE HYDROCHLORIDE

REACTIONS (6)
  - Product dose omission issue [Unknown]
  - Depressed mood [Unknown]
  - Mood altered [Unknown]
  - Appetite disorder [Unknown]
  - Sleep disorder [Unknown]
  - Product availability issue [Unknown]
